FAERS Safety Report 5144359-9 (Version None)
Quarter: 2006Q4

REPORT INFORMATION
  Report Type: 
  Country: None (occurrence: None)
  Receive Date: 20061030
  Receipt Date: 20061017
  Transmission Date: 20070319
  Serious: Yes (Other)
  Sender: FDA-Public Use
  Company Number: 2006127423

PATIENT
  Age: 58 Year
  Sex: Male
  Weight: 92.9874 kg

DRUGS (2)
  1. CELEBREX [Suspect]
     Indication: TENDONITIS
     Dosage: 200 MG (200 MG, 1 IN 1 D)
     Dates: start: 20060810
  2. TOPROL-XL [Concomitant]

REACTIONS (3)
  - FLANK PAIN [None]
  - PYREXIA [None]
  - RENAL VASCULITIS [None]
